FAERS Safety Report 4369185-X (Version None)
Quarter: 2004Q2

REPORT INFORMATION
  Report Type: 
  Country: None (occurrence: None)
  Receive Date: 20040527
  Receipt Date: 20040510
  Transmission Date: 20050107
  Serious: Yes (Hospitalization)
  Sender: FDA-Public Use
  Company Number: USA040567092

PATIENT
  Age: 61 Year
  Sex: Female

DRUGS (4)
  1. STRATTERA [Suspect]
     Indication: ATTENTION DEFICIT/HYPERACTIVITY DISORDER
     Dosage: 40 MG DAY
     Dates: start: 20031001, end: 20040201
  2. NORVASC [Concomitant]
  3. GLIPIZIDE [Concomitant]
  4. CELEBREX [Concomitant]

REACTIONS (6)
  - CARTILAGE INJURY [None]
  - ECONOMIC PROBLEM [None]
  - LEG CRUSHING [None]
  - ROAD TRAFFIC ACCIDENT [None]
  - STRABISMUS [None]
  - VITH NERVE PARALYSIS [None]
